FAERS Safety Report 6453064-8 (Version None)
Quarter: 2009Q4

REPORT INFORMATION
  Report Type: 
  Country: None (occurrence: None)
  Receive Date: 20091124
  Receipt Date: 20090601
  Transmission Date: 20100525
  Serious: No
  Sender: FDA-Public Use
  Company Number: US-ABBOTT-09P-163-0576978-00

PATIENT
  Sex: Male
  Weight: 92.162 kg

DRUGS (8)
  1. TRICOR [Suspect]
     Indication: BLOOD TRIGLYCERIDES INCREASED
     Route: 048
     Dates: start: 20090529, end: 20090530
  2. TRICOR [Suspect]
     Route: 048
     Dates: start: 20090531, end: 20090531
  3. LOVASTATIN [Concomitant]
     Indication: BLOOD TRIGLYCERIDES INCREASED
     Dates: start: 20090601
  4. LOVASTATIN [Concomitant]
     Dosage: 1.5 TABLETS
     Route: 048
  5. BENICAR HCT [Concomitant]
     Indication: HYPERTENSION
     Dosage: 40/12.5
     Route: 048
  6. TEGRETOL-XR [Concomitant]
     Indication: CONVULSION
     Dosage: 200 MG (2 IN 1 D), 400 MG (1 IN 1 D)
  7. KLONOPIN [Concomitant]
     Indication: CONVULSION
     Route: 048
  8. TRAZODONE HCL [Concomitant]
     Indication: INSOMNIA
     Route: 048

REACTIONS (3)
  - BLADDER DISCOMFORT [None]
  - POLLAKIURIA [None]
  - TREATMENT NONCOMPLIANCE [None]
